FAERS Safety Report 4864834-1 (Version None)
Quarter: 2005Q4

REPORT INFORMATION
  Report Type: 
  Country: None (occurrence: None)
  Receive Date: 20051222
  Receipt Date: 20050801
  Transmission Date: 20060501
  Serious: Yes (Hospitalization, Other)
  Sender: FDA-Public Use
  Company Number: US-MERCK-0508USA00875

PATIENT
  Sex: Female

DRUGS (1)
  1. VIOXX [Suspect]
     Route: 048

REACTIONS (16)
  - ANAEMIA [None]
  - CARDIAC FAILURE CONGESTIVE [None]
  - CHRONIC OBSTRUCTIVE PULMONARY DISEASE [None]
  - DEEP VEIN THROMBOSIS [None]
  - GASTROOESOPHAGEAL REFLUX DISEASE [None]
  - HAEMOPTYSIS [None]
  - HIATUS HERNIA [None]
  - HYPERTENSION [None]
  - MYOCARDIAL INFARCTION [None]
  - OBESITY [None]
  - OSTEOARTHRITIS [None]
  - PANCREATITIS ACUTE [None]
  - PNEUMONIA [None]
  - PULMONARY EMBOLISM [None]
  - STAPHYLOCOCCAL SEPSIS [None]
  - VAGINAL PROLAPSE [None]
